FAERS Safety Report 16661490 (Version 2)
Quarter: 2019Q4

REPORT INFORMATION
  Report Type: Spontaneous
  Country: CA (occurrence: CA)
  Receive Date: 20190802
  Receipt Date: 20191216
  Transmission Date: 20200122
  Serious: Yes (Hospitalization)
  Sender: FDA-Public Use
  Company Number: CA-PFIZER INC-2019328500

PATIENT
  Age: 65 Year
  Sex: Female

DRUGS (1)
  1. IBRANCE [Suspect]
     Active Substance: PALBOCICLIB
     Dosage: 125 MG, DAILY X 21 DAYS / 28DAYS
     Route: 048
     Dates: start: 20190617

REACTIONS (4)
  - Dizziness [Unknown]
  - Heart rate abnormal [Unknown]
  - Dyspnoea [Unknown]
  - Hypotension [Unknown]
